FAERS Safety Report 8907017 (Version 4)
Quarter: 2013Q1

REPORT INFORMATION
  Report Type: Spontaneous
  Country: IT (occurrence: FR)
  Receive Date: 20121114
  Receipt Date: 20130129
  Transmission Date: 20140127
  Serious: Yes (Hospitalization)
  Sender: FDA-Public Use
  Company Number: FR-FRI-1000040334

PATIENT
  Age: 43 Year
  Sex: Female

DRUGS (5)
  1. FOSFOMYCIN [Suspect]
     Indication: URINARY TRACT INFECTION
     Dosage: 3 GRAM
     Route: 048
     Dates: start: 20120919, end: 20120919
  2. VEMURAFENIB [Suspect]
     Indication: METASTATIC MALIGNANT MELANOMA
     Route: 048
     Dates: start: 20120918, end: 201210
  3. ECONAZOLE [Concomitant]
     Indication: VULVOVAGINAL MYCOTIC INFECTION
     Dosage: 1 DF
     Dates: start: 20120919, end: 20120919
  4. ECONAZOLE [Concomitant]
     Dosage: 1 DF
     Dates: start: 20120923, end: 20120923
  5. OESTROPROGESTATIVE [Concomitant]
     Indication: CONTRACEPTION

REACTIONS (2)
  - Rash maculo-papular [Recovered/Resolved]
  - Hepatocellular injury [Recovered/Resolved]
